FAERS Safety Report 5493419-1 (Version None)
Quarter: 2007Q4

REPORT INFORMATION
  Report Type: 
  Country: None (occurrence: None)
  Receive Date: 20071023
  Receipt Date: 20071009
  Transmission Date: 20080405
  Serious: Yes (Hospitalization)
  Sender: FDA-Public Use
  Company Number: US-ELI_LILLY_AND_COMPANY-US200709002925

PATIENT
  Age: 89 Year
  Sex: Female
  Weight: 54.422 kg

DRUGS (10)
  1. CYMBALTA [Suspect]
     Indication: ARTHRALGIA
     Dosage: 10 MG, UNK
     Dates: start: 20070701
  2. CYMBALTA [Suspect]
     Dosage: 20 MG, UNK
     Dates: start: 20070101
  3. CYMBALTA [Suspect]
     Dosage: 30 MG, UNK
     Dates: start: 20070101
  4. ZOLOFT [Concomitant]
     Indication: DEPRESSION
  5. DIURETICS [Concomitant]
  6. DIAZEPAM [Concomitant]
  7. AMBIEN [Concomitant]
  8. VICODIN [Concomitant]
  9. METOPROLOL [Concomitant]
  10. DIOVAN [Concomitant]

REACTIONS (5)
  - FALL [None]
  - FEMUR FRACTURE [None]
  - HOSPITALISATION [None]
  - HYPERTENSION [None]
  - TACHYCARDIA [None]
